FAERS Safety Report 7344526-X (Version None)
Quarter: 2011Q1

REPORT INFORMATION
  Report Type: 
  Country: None (occurrence: None)
  Receive Date: 20110307
  Receipt Date: 20110307
  Transmission Date: 20110831
  Serious: Yes (Other)
  Sender: FDA-Public Use
  Company Number: None

PATIENT
  Age: 27 Year
  Sex: Male
  Weight: 79.3795 kg

DRUGS (1)
  1. ARTICAINE HYDROCHLORIDE/EPINEPHRINE BITARTRATE [Suspect]
     Indication: LOCAL ANAESTHESIA
     Dosage: 2.6 ML ONE PROCEDURE DENTAL
     Route: 004
     Dates: start: 20110228, end: 20110228

REACTIONS (4)
  - ANAESTHETIC COMPLICATION NEUROLOGICAL [None]
  - IATROGENIC INJURY [None]
  - CRANIAL NERVE INJURY [None]
  - PARAESTHESIA [None]
